FAERS Safety Report 8107376-2 (Version None)
Quarter: 2011Q4

REPORT INFORMATION
  Report Type: 
  Country: None (occurrence: None)
  Receive Date: 20111227
  Receipt Date: 20111118
  Transmission Date: 20120403
  Serious: No
  Sender: FDA-Public Use
  Company Number: PHEH2011US010165

PATIENT
  Age: 49 Year
  Sex: Female

DRUGS (7)
  1. CYMBALTA [Concomitant]
  2. GILENYA [Suspect]
     Indication: MULTIPLE SCLEROSIS
     Dosage: 0.5 MG, QD, ORAL
     Route: 048
  3. FAMPRIDINE (FAMPRIDINE) [Concomitant]
  4. PREMARIN [Concomitant]
  5. BACLOFEN [Concomitant]
  6. AMBIEN [Concomitant]
  7. NUVIGIL [Concomitant]

REACTIONS (1)
  - FATIGUE [None]
